FAERS Safety Report 7787271-9 (Version None)
Quarter: 2011Q3

REPORT INFORMATION
  Report Type: 
  Country: None (occurrence: None)
  Receive Date: 20110927
  Receipt Date: 20110919
  Transmission Date: 20111222
  Serious: Yes (Death, Hospitalization, Other)
  Sender: FDA-Public Use
  Company Number: AUR-APL-2011-05053

PATIENT
  Age: 61 Year
  Sex: Female
  Weight: 66 kg

DRUGS (25)
  1. RISPERIDONE [Suspect]
     Indication: PRODUCT USED FOR UNKNOWN INDICATION
     Dosage: (2 MG,IN THE MORNING)
  2. CELECOXIB [Suspect]
     Indication: PRODUCT USED FOR UNKNOWN INDICATION
     Dosage: 400 MG (200 MG,2 IN 1 D)
  3. ESTROGENS CONJUGATED [Suspect]
     Indication: PRODUCT USED FOR UNKNOWN INDICATION
     Dosage: (1.3 MG,1 D)
  4. TRAZODONE HCL [Suspect]
     Indication: PRODUCT USED FOR UNKNOWN INDICATION
     Dosage: (200 MG,AT BED TIME)
  5. VENLAFAXINE HCL [Suspect]
     Indication: PRODUCT USED FOR UNKNOWN INDICATION
     Dosage: 150 MG (75 MG,2 IN 1 D)
  6. FLUCONAZOLE [Suspect]
     Indication: PRODUCT USED FOR UNKNOWN INDICATION
     Dosage: (150 MG,5-6 TIMES IN PAST 6 MONTHS)
  7. SUMATRIPTAN SUCCINATE [Suspect]
     Indication: PRODUCT USED FOR UNKNOWN INDICATION
     Dosage: (50 MG,AS REQUIRED)
  8. BUDESONIDE [Suspect]
     Indication: PRODUCT USED FOR UNKNOWN INDICATION
     Dosage: 400 MCG (200 MCG,2 IN 1 D),INHALATION
     Route: 055
  9. MOMETASONE FUROATE [Suspect]
     Indication: PRODUCT USED FOR UNKNOWN INDICATION
     Dosage: (0.05 %,2 SPRAY TWICE)
  10. ALENDRONATE SODIUM [Suspect]
     Indication: PRODUCT USED FOR UNKNOWN INDICATION
     Dosage: (70 MG,1 WK)
  11. LEVOTHYROXINE SODIUM [Suspect]
     Indication: PRODUCT USED FOR UNKNOWN INDICATION
     Dosage: (50 MCG,1 D)
  12. LOPERAMIDE [Suspect]
     Indication: PRODUCT USED FOR UNKNOWN INDICATION
     Dosage: (2 MG,AS REQUIRED)
  13. ALBUTEROL SULFATE [Suspect]
     Indication: PRODUCT USED FOR UNKNOWN INDICATION
     Dosage: (100 MCG,AS REQUIRED)
  14. CYCLOBENZAPRINE [Suspect]
     Indication: PRODUCT USED FOR UNKNOWN INDICATION
     Dosage: (10 MG,AS REQUIRED)
  15. HALOPERIDOL [Suspect]
     Indication: PRODUCT USED FOR UNKNOWN INDICATION
     Dosage: (20 MG,AT BED TIME)
  16. HYDROXYZINE HYDROCHLORIDE [Suspect]
     Indication: PRODUCT USED FOR UNKNOWN INDICATION
     Dosage: 50 MG (25 MG,2 IN 1 D)
  17. FUROSEMIDE [Suspect]
     Indication: PRODUCT USED FOR UNKNOWN INDICATION
     Dosage: (40 MG,1 D)
  18. DESIPRAMINE HCL [Suspect]
     Indication: PRODUCT USED FOR UNKNOWN INDICATION
     Dosage: 50 MG (25 MG,2 IN 1 D)
  19. PREDNISONE [Suspect]
     Indication: PRODUCT USED FOR UNKNOWN INDICATION
     Dosage: 7.5 MG (7.5 MG,1 IN 1 D)
  20. HYDROXYCHLOROQUINE SULFATE [Suspect]
     Indication: PRODUCT USED FOR UNKNOWN INDICATION
     Dosage: 400 MG (200 MG,2 IN 1 D)
  21. LORAZEPAM [Concomitant]
  22. QUETIAPINE FUMARATE [Suspect]
     Indication: PRODUCT USED FOR UNKNOWN INDICATION
     Dosage: (400 MG,AT BED TIME)
  23. ATORVASTATIN CALCIUM [Concomitant]
  24. OMEPRAZOLE [Suspect]
     Indication: PRODUCT USED FOR UNKNOWN INDICATION
     Dosage: 40 MG (20 MG,2 IN 1 D)
  25. BACTRIM [Concomitant]
     Indication: PRODUCT USED FOR UNKNOWN INDICATION
     Dosage: 160/800 UG (1 D)

REACTIONS (37)
  - PAIN [None]
  - APALLIC SYNDROME [None]
  - ANTIPSYCHOTIC DRUG LEVEL INCREASED [None]
  - CONTUSION [None]
  - LACERATION [None]
  - METABOLIC DISORDER [None]
  - BREATH SOUNDS ABNORMAL [None]
  - RHABDOMYOLYSIS [None]
  - RESPIRATORY FAILURE [None]
  - HYPOXIC-ISCHAEMIC ENCEPHALOPATHY [None]
  - FALL [None]
  - LIVEDO RETICULARIS [None]
  - PERIPHERAL COLDNESS [None]
  - TACHYPNOEA [None]
  - CYANOSIS [None]
  - RENAL FAILURE [None]
  - BLOOD CATECHOLAMINES INCREASED [None]
  - SERUM SEROTONIN DECREASED [None]
  - ANXIETY [None]
  - PARKINSONISM [None]
  - HEPATIC ENZYME INCREASED [None]
  - 5-HYDROXYINDOLACETIC ACID DECREASED [None]
  - ARRHYTHMIA [None]
  - TACHYCARDIA [None]
  - SEPTIC SHOCK [None]
  - NEUROLEPTIC MALIGNANT SYNDROME [None]
  - CATECHOLAMINES URINE INCREASED [None]
  - LOSS OF CONSCIOUSNESS [None]
  - ASPIRATION [None]
  - ANTIDEPRESSANT DRUG LEVEL INCREASED [None]
  - METABOLIC ACIDOSIS [None]
  - MALAISE [None]
  - HYPOTENSION [None]
  - ABDOMINAL DISTENSION [None]
  - GENERAL PHYSICAL HEALTH DETERIORATION [None]
  - ELECTROLYTE IMBALANCE [None]
  - DEHYDRATION [None]
